FAERS Safety Report 8758573 (Version 1)
Quarter: 2012Q4

REPORT INFORMATION
  Report Type: 
  Country: US (occurrence: US)
  Receive Date: 20120829
  Receipt Date: 20120829
  Transmission Date: 20130627
  Serious: No
  Sender: FDA-Public Use
  Company Number: US-GLAXOSMITHKLINE-A0979587A

PATIENT
  Age: 45 Year
  Sex: Female

DRUGS (2)
  1. ZOVIRAX [Suspect]
     Indication: ORAL HERPES
     Route: 061
     Dates: start: 20120418, end: 20120428
  2. ANTIHYPERTENSIVE (UNSPECIFIED) [Concomitant]
     Dates: start: 2010

REACTIONS (1)
  - Drug ineffective [Unknown]
